FAERS Safety Report 9437136 (Version 2)
Quarter: 2013Q3

REPORT INFORMATION
  Report Type: Report from Study
  Country: DE (occurrence: DE)
  Receive Date: 20130802
  Receipt Date: 20130809
  Transmission Date: 20140515
  Serious: Yes (Life-Threatening, Hospitalization)
  Sender: FDA-Public Use
  Company Number: DE-CELGENEUS-062-C4047-13051196

PATIENT
  Age: 70 Year
  Sex: Female
  Weight: 95 kg

DRUGS (3)
  1. CC-4047 [Suspect]
     Indication: MYELODYSPLASTIC SYNDROME
     Dosage: .5 MILLIGRAM
     Route: 048
     Dates: start: 20121030, end: 20130429
  2. DEFERASIROX [Concomitant]
     Indication: PRODUCT USED FOR UNKNOWN INDICATION
     Dosage: 100 MILLIGRAM
     Route: 048
     Dates: start: 20121001
  3. ASA [Concomitant]
     Indication: PRODUCT USED FOR UNKNOWN INDICATION
     Dosage: 100 MILLIGRAM
     Route: 048
     Dates: start: 20121001

REACTIONS (2)
  - Diverticular perforation [Recovered/Resolved]
  - Peritonitis [Recovered/Resolved]
